FAERS Safety Report 17283612 (Version 2)
Quarter: 2020Q1

REPORT INFORMATION
  Report Type: Spontaneous
  Country: NL (occurrence: NL)
  Receive Date: 20200117
  Receipt Date: 20200316
  Transmission Date: 20200409
  Serious: Yes (Other)
  Sender: FDA-Public Use
  Company Number: NL-ASTELLAS-2019US027730

PATIENT
  Age: 77 Year
  Sex: Male

DRUGS (1)
  1. XTANDI [Suspect]
     Active Substance: ENZALUTAMIDE
     Indication: SALIVARY GLAND CANCER
     Route: 048
     Dates: start: 20190711

REACTIONS (4)
  - Product use in unapproved indication [Unknown]
  - Cholestasis [Unknown]
  - Hyponatraemia [Unknown]
  - Myositis [Unknown]
